FAERS Safety Report 10560050 (Version 1)
Quarter: 2014Q4

REPORT INFORMATION
  Report Type: Spontaneous
  Country: US (occurrence: None)
  Receive Date: 20141031
  Receipt Date: 20141031
  Transmission Date: 20150529
  Serious: Yes (Disabling)
  Sender: FDA-Public Use
  Company Number: None

PATIENT
  Age: 36 Year
  Sex: Male
  Weight: 99.79 kg

DRUGS (1)
  1. LAMICTAL [Suspect]
     Active Substance: LAMOTRIGINE
     Indication: AFFECTIVE DISORDER
     Dosage: 1 PILL, ONCE DAILY, TAKEN BY MOUTH
     Route: 048
     Dates: start: 20141002, end: 20141004

REACTIONS (9)
  - Myalgia [None]
  - Swelling [None]
  - Muscle swelling [None]
  - Pain in extremity [None]
  - Muscle spasms [None]
  - Peripheral swelling [None]
  - Joint swelling [None]
  - Back disorder [None]
  - Pain [None]

NARRATIVE: CASE EVENT DATE: 20141002
